FAERS Safety Report 10034140 (Version 1)
Quarter: 2014Q1

REPORT INFORMATION
  Report Type: Spontaneous
  Country: US (occurrence: None)
  Receive Date: 20140324
  Receipt Date: 20140324
  Transmission Date: 20141002
  Serious: Yes (Hospitalization)
  Sender: FDA-Public Use
  Company Number: None

PATIENT
  Age: 69 Year
  Sex: Male
  Weight: 127.7 kg

DRUGS (2)
  1. ZYTIGA 250 MG JANSSEN BIOTECH [Suspect]
     Dosage: 1000 MG  DAILY  PO
     Route: 048
     Dates: start: 20131018
  2. LOVENOX [Concomitant]

REACTIONS (1)
  - Drug dose omission [None]
